FAERS Safety Report 25710653 (Version 1)
Quarter: 2025Q3

REPORT INFORMATION
  Report Type: Spontaneous
  Country: EU (occurrence: EU)
  Receive Date: 20250821
  Receipt Date: 20250821
  Transmission Date: 20251021
  Serious: Yes (Other)
  Sender: AMERICAN REGENT
  Company Number: EU-AMERICAN REGENT INC-2025003196

PATIENT
  Age: 24 Year
  Sex: Female
  Weight: 43 kg

DRUGS (2)
  1. FERINJECT [Suspect]
     Active Substance: FERRIC CARBOXYMALTOSE
     Indication: Product used for unknown indication
     Route: 042
     Dates: start: 20250705, end: 20250705
  2. FERINJECT [Suspect]
     Active Substance: FERRIC CARBOXYMALTOSE
     Route: 042
     Dates: start: 20250709, end: 20250709

REACTIONS (9)
  - Dermatitis atopic [Recovered/Resolved]
  - Skin discolouration [Recovered/Resolved]
  - Rash [Recovered/Resolved]
  - Urticaria [Recovered/Resolved]
  - Pruritus [Recovered/Resolved]
  - Flushing [Recovered/Resolved]
  - Angioedema [Recovered/Resolved]
  - Dysgeusia [Recovered/Resolved]
  - Rash [Recovered/Resolved]

NARRATIVE: CASE EVENT DATE: 20250709
